FAERS Safety Report 5510610-6 (Version None)
Quarter: 2007Q4

REPORT INFORMATION
  Report Type: 
  Country: None (occurrence: None)
  Receive Date: 20071108
  Receipt Date: 20071025
  Transmission Date: 20080405
  Serious: No
  Sender: FDA-Public Use
  Company Number: US-BOEHRINGER INGELHEIM PHARMACEUTICALS, INC.-2007-BP-23365BP

PATIENT
  Age: 42 Year
  Sex: Male

DRUGS (2)
  1. MICARDIS [Suspect]
     Indication: HYPERTENSION
     Route: 048
     Dates: start: 20070901
  2. HYDROCHLOROTHIAZIDE [Concomitant]
     Indication: HYPERTENSION
     Dates: start: 20070901, end: 20071001

REACTIONS (10)
  - ANOREXIA [None]
  - ARTHRALGIA [None]
  - DIARRHOEA [None]
  - HYPERHIDROSIS [None]
  - JOINT SWELLING [None]
  - LETHARGY [None]
  - MYALGIA [None]
  - PAIN [None]
  - PYREXIA [None]
  - SWELLING [None]
